FAERS Safety Report 11667173 (Version 1)
Quarter: 2015Q4

REPORT INFORMATION
  Report Type: Spontaneous
  Country: US (occurrence: US)
  Receive Date: 20151027
  Receipt Date: 20151027
  Transmission Date: 20160304
  Serious: No
  Sender: FDA-Public Use
  Company Number: US-ASTRAZENECA-2015SE98804

PATIENT
  Age: 641 Month
  Sex: Female
  Weight: 47.6 kg

DRUGS (1)
  1. ANASTROZOLE. [Suspect]
     Active Substance: ANASTROZOLE
     Indication: HYPERPLASIA
     Route: 048
     Dates: start: 20150907

REACTIONS (5)
  - Depression [Unknown]
  - Alopecia [Unknown]
  - Hot flush [Unknown]
  - Product use issue [Unknown]
  - Off label use [Unknown]

NARRATIVE: CASE EVENT DATE: 201509
